FAERS Safety Report 9647681 (Version 2)
Quarter: 2013Q4

REPORT INFORMATION
  Report Type: Report from Study
  Country: DE (occurrence: DE)
  Receive Date: 20131028
  Receipt Date: 20131030
  Transmission Date: 20140711
  Serious: Yes (Death)
  Sender: FDA-Public Use
  Company Number: DE-ROCHE-1293873

PATIENT
  Sex: Male

DRUGS (7)
  1. RANIBIZUMAB [Suspect]
     Indication: AGE-RELATED MACULAR DEGENERATION
     Dosage: INITIAL DOSE
     Route: 050
     Dates: start: 20081126
  2. RANIBIZUMAB [Suspect]
     Dosage: FIRST DOSE OF STUDY
     Route: 050
     Dates: start: 20120403
  3. RANIBIZUMAB [Suspect]
     Dosage: LAST DOSE
     Route: 050
     Dates: start: 20120605
  4. FLOXAL [Concomitant]
     Route: 065
     Dates: start: 20120402
  5. LUMIGAN [Concomitant]
     Dosage: 0.1 MG/ML
     Route: 065
     Dates: start: 20111116
  6. MARCUMAR [Concomitant]
  7. DIGOXIN [Concomitant]

REACTIONS (2)
  - Death [Fatal]
  - Visual acuity reduced [Unknown]
